FAERS Safety Report 6139100-7 (Version None)
Quarter: 2009Q1

REPORT INFORMATION
  Report Type: 
  Country: None (occurrence: None)
  Receive Date: 20090324
  Receipt Date: 20090318
  Transmission Date: 20090719
  Serious: Yes (Other)
  Sender: FDA-Public Use
  Company Number: MOZO-1000184

PATIENT
  Age: 62 Year
  Sex: Male

DRUGS (19)
  1. MOZOBIL [Suspect]
     Indication: HAEMATOPOIETIC STEM CELL MOBILISATION
     Dates: start: 20090119, end: 20090120
  2. GRANULOCYTE COLONY STIMULATING FACTOR (GRANULOCYTE COLONY STIMULATING [Concomitant]
  3. PROTONIX [Concomitant]
  4. COMPAZINE (PROCHLORPERAZINE MALEATE) [Concomitant]
  5. ATIVAN [Concomitant]
  6. OXYCODONE HCL [Concomitant]
  7. AMBIEN [Concomitant]
  8. MAGNESIUM (MAGNESIUM) [Concomitant]
  9. POTASSIUM (POTASSIUM) [Concomitant]
  10. ENALAPRIL MALEATE AND HYDROCHLOROTHIAZIDE [Concomitant]
  11. BUSULFAN (BUSULFAN) [Concomitant]
  12. CYTOXAN [Concomitant]
  13. PHENYTOIN [Concomitant]
  14. ENOXAPARIN SODIUM [Concomitant]
  15. CETIRIZINE HCL [Concomitant]
  16. APREPITANT (APREPITANT) [Concomitant]
  17. DEXAMETHASONE TAB [Concomitant]
  18. BENADRYL [Concomitant]
  19. LEUKINE [Concomitant]

REACTIONS (1)
  - DELAYED ENGRAFTMENT [None]
